FAERS Safety Report 10410978 (Version 2)
Quarter: 2020Q2

REPORT INFORMATION
  Report Type: Spontaneous
  Country: NL (occurrence: NL)
  Receive Date: 20140826
  Receipt Date: 20200430
  Transmission Date: 20200713
  Serious: Yes (Other)
  Sender: FDA-Public Use
  Company Number: PHHY2014NL105778

PATIENT
  Sex: Male
  Weight: 2.09 kg

DRUGS (2)
  1. PACLITAXEL. [Suspect]
     Active Substance: PACLITAXEL
     Indication: FOETAL EXPOSURE DURING PREGNANCY
     Dosage: MATERNAL DOSE: 90 MG/M2, WEEKLY, CYCLIC
     Route: 064
  2. CISPLATIN. [Suspect]
     Active Substance: CISPLATIN
     Indication: FOETAL EXPOSURE DURING PREGNANCY
     Dosage: MATERNAL DOSE: 70 MG/M2, WEEKLY, CYCLIC
     Route: 064

REACTIONS (6)
  - Premature baby [Unknown]
  - Hypoacusis [Unknown]
  - Low birth weight baby [Unknown]
  - Ototoxicity [Unknown]
  - Neonatal deafness [Unknown]
  - Foetal exposure during pregnancy [Unknown]
